FAERS Safety Report 16136437 (Version 4)
Quarter: 2025Q3

REPORT INFORMATION
  Report Type: Report from Study
  Country: US (occurrence: US)
  Receive Date: 20190329
  Receipt Date: 20250912
  Transmission Date: 20251021
  Serious: Yes (Other)
  Sender: TAKEDA
  Company Number: US-SHIRE-US201910163

PATIENT
  Age: 6 Year
  Sex: Male

DRUGS (2)
  1. VELAGLUCERASE ALFA [Suspect]
     Active Substance: VELAGLUCERASE ALFA
     Indication: Gaucher^s disease
     Dosage: UNK UNK, 2/WEEK
     Dates: start: 20160718
  2. VELAGLUCERASE ALFA [Suspect]
     Active Substance: VELAGLUCERASE ALFA

REACTIONS (6)
  - Pneumonia [Recovered/Resolved]
  - Influenza [Recovering/Resolving]
  - Pyrexia [Recovered/Resolved]
  - Product dose omission issue [Unknown]
  - Product distribution issue [Unknown]
  - Inappropriate schedule of product administration [Unknown]

NARRATIVE: CASE EVENT DATE: 20190221
